FAERS Safety Report 11729063 (Version 1)
Quarter: 2015Q4

REPORT INFORMATION
  Report Type: Spontaneous
  Country: US (occurrence: US)
  Receive Date: 20151110
  Receipt Date: 20151110
  Transmission Date: 20160304
  Serious: No
  Sender: FDA-Public Use
  Company Number: US-ELI_LILLY_AND_COMPANY-US201112005495

PATIENT
  Age: 76 Year
  Sex: Female

DRUGS (1)
  1. FORTEO [Suspect]
     Active Substance: TERIPARATIDE
     Indication: OSTEOPOROSIS
     Dosage: UNK, QD
     Dates: start: 20111117

REACTIONS (10)
  - Fatigue [Unknown]
  - Muscle spasms [Recovering/Resolving]
  - Joint swelling [Recovered/Resolved]
  - Feeling abnormal [Recovered/Resolved]
  - Pain [Recovering/Resolving]
  - Malaise [Unknown]
  - Arthralgia [Recovered/Resolved]
  - Drug dose omission [Unknown]
  - Incorrect drug administration duration [Unknown]
  - Bone pain [Unknown]

NARRATIVE: CASE EVENT DATE: 201112
